FAERS Safety Report 4559360-3 (Version None)
Quarter: 2005Q1

REPORT INFORMATION
  Report Type: 
  Country: None (occurrence: None)
  Receive Date: 20050124
  Receipt Date: 20050117
  Transmission Date: 20050727
  Serious: Yes (Other)
  Sender: FDA-Public Use
  Company Number: PHBS2005JP01175

PATIENT

DRUGS (1)
  1. DIOVAN [Suspect]
     Route: 048

REACTIONS (2)
  - GENERALISED ERYTHEMA [None]
  - SHOCK [None]
